FAERS Safety Report 8317272-3 (Version None)
Quarter: 2012Q2

REPORT INFORMATION
  Report Type: 
  Country: None (occurrence: None)
  Receive Date: 20120425
  Receipt Date: 20120417
  Transmission Date: 20120825
  Serious: Yes (Hospitalization, Other)
  Sender: FDA-Public Use
  Company Number: 2012SP010346

PATIENT
  Age: 62 Year
  Sex: Male
  Weight: 64 kg

DRUGS (10)
  1. BETAMAC [Concomitant]
  2. RIKKUNSHI-TO [Concomitant]
  3. PEG-INTRON [Suspect]
     Indication: HEPATITIS C
     Dosage: 1.5 MCG/KG;QW;SC
     Route: 058
     Dates: start: 20120210, end: 20120317
  4. REBETOL [Suspect]
     Indication: HEPATITIS C
     Dosage: 800 MG;QD;PO
     Route: 048
     Dates: start: 20120210, end: 20120317
  5. ALLOPURINOL [Concomitant]
  6. RIBAVIRIN [Concomitant]
  7. CLOBETASOL PROPIONATE [Concomitant]
  8. TELAVIC (TELAPREVIR) (INVESTIGATIONAL DRUG) [Suspect]
     Indication: HEPATITIS C
     Dosage: 2250 MG;QD;PO
     Route: 048
     Dates: start: 20120210, end: 20120317
  9. INTERFERON [Concomitant]
  10. GASMOTIN [Concomitant]

REACTIONS (7)
  - ANAEMIA [None]
  - PRURITUS [None]
  - RASH [None]
  - BLOOD CREATININE INCREASED [None]
  - DEPRESSIVE SYMPTOM [None]
  - BLOOD URIC ACID INCREASED [None]
  - DUODENAL ULCER [None]
